FAERS Safety Report 20171718 (Version 3)
Quarter: 2022Q1

REPORT INFORMATION
  Report Type: Report from Study
  Country: US (occurrence: None)
  Receive Date: 20211210
  Receipt Date: 20220223
  Transmission Date: 20220424
  Serious: Yes (Life-Threatening, Hospitalization)
  Sender: FDA-Public Use
  Company Number: US-Eisai Medical Research-EC-2021-104693

PATIENT
  Age: 86 Year
  Sex: Female
  Weight: 61.7 kg

DRUGS (5)
  1. ERIBULIN [Suspect]
     Active Substance: ERIBULIN
     Indication: Bladder cancer
     Route: 042
     Dates: start: 20190418, end: 20190620
  2. ATEZOLIZUMAB [Suspect]
     Active Substance: ATEZOLIZUMAB
     Indication: Bladder cancer
     Route: 042
     Dates: start: 20190418, end: 20211008
  3. BUMETANIDE [Concomitant]
     Active Substance: BUMETANIDE
  4. COUMADIN [Concomitant]
     Active Substance: WARFARIN SODIUM
  5. LOSARTAN POTASSIUM [Concomitant]
     Active Substance: LOSARTAN POTASSIUM

REACTIONS (4)
  - Respiratory failure [Recovered/Resolved]
  - Muscular weakness [Not Recovered/Not Resolved]
  - Cardiac failure [Recovering/Resolving]
  - Urinary tract infection [Recovered/Resolved]

NARRATIVE: CASE EVENT DATE: 20211021
